FAERS Safety Report 11236689 (Version 1)
Quarter: 2015Q3

REPORT INFORMATION
  Report Type: Spontaneous
  Country: US (occurrence: US)
  Receive Date: 20150703
  Receipt Date: 20150703
  Transmission Date: 20151125
  Serious: Yes (Other)
  Sender: FDA-Public Use
  Company Number: US-JNJCP-30000290463

PATIENT
  Sex: Female

DRUGS (1)
  1. NEUTROGENA HEALTHY SKIN FACE SUNSCREEN SPF 15 [Suspect]
     Active Substance: OCTINOXATE\OXYBENZONE
     Indication: PROPHYLAXIS
     Route: 061

REACTIONS (1)
  - Skin cancer [Unknown]
